FAERS Safety Report 8608565-0 (Version None)
Quarter: 2012Q3

REPORT INFORMATION
  Report Type: 
  Country: None (occurrence: None)
  Receive Date: 20120821
  Receipt Date: 20120814
  Transmission Date: 20120928
  Serious: Yes (Hospitalization, Other)
  Sender: FDA-Public Use
  Company Number: US-PFIZER INC-2004110167

PATIENT
  Age: 62 Year
  Sex: Female

DRUGS (3)
  1. ASPIRIN [Concomitant]
     Indication: HEADACHE
     Dosage: UNK
     Dates: start: 19750101, end: 20110701
  2. PROVERA [Suspect]
     Indication: HORMONE REPLACEMENT THERAPY
     Dosage: 10 MG, UNK
     Route: 048
     Dates: start: 19940501, end: 19960801
  3. PREMPRO [Suspect]
     Indication: HORMONE REPLACEMENT THERAPY
     Dosage: 0.625/2.5MG
     Route: 048
     Dates: start: 19960801, end: 20010330

REACTIONS (2)
  - BREAST CANCER FEMALE [None]
  - EMOTIONAL DISTRESS [None]
